FAERS Safety Report 8293473-8 (Version None)
Quarter: 2012Q2

REPORT INFORMATION
  Report Type: 
  Country: None (occurrence: None)
  Receive Date: 20120417
  Receipt Date: 20120404
  Transmission Date: 20120825
  Serious: Yes (Other)
  Sender: FDA-Public Use
  Company Number: US-MYLANLABS-2012S1007454

PATIENT
  Sex: Female

DRUGS (2)
  1. MELPHALAN HYDROCHLORIDE [Suspect]
     Dosage: 5MG
     Route: 013
  2. MELPHALAN HYDROCHLORIDE [Suspect]
     Indication: RETINOBLASTOMA UNILATERAL
     Dosage: 8MG
     Route: 013

REACTIONS (1)
  - PERIORBITAL OEDEMA [None]
